FAERS Safety Report 21791521 (Version 1)
Quarter: 2022Q4

REPORT INFORMATION
  Report Type: Spontaneous
  Country: CN (occurrence: CN)
  Receive Date: 20221228
  Receipt Date: 20221228
  Transmission Date: 20230113
  Serious: Yes (Death, Hospitalization)
  Sender: FDA-Public Use
  Company Number: CN-STRIDES ARCOLAB LIMITED-2022SP017325

PATIENT
  Age: 68 Year
  Sex: Female

DRUGS (20)
  1. POTASSIUM CITRATE [Suspect]
     Active Substance: POTASSIUM CITRATE
     Indication: Supplementation therapy
     Dosage: UNK (SUPPORTIVE THERAPY)
     Route: 065
  2. METHYLPREDNISOLONE [Suspect]
     Active Substance: METHYLPREDNISOLONE
     Indication: Myocarditis
     Dosage: 80 MILLIGRAM PER DAY
     Route: 042
  3. METHYLPREDNISOLONE [Suspect]
     Active Substance: METHYLPREDNISOLONE
     Indication: Myositis
     Dosage: 1 GRAM PER DAY (HIGHER DOSE OF METHYLPREDNISOLONE)
     Route: 065
  4. METHYLPREDNISOLONE [Suspect]
     Active Substance: METHYLPREDNISOLONE
     Indication: Hepatitis
  5. PHOSPHOLIPID [Suspect]
     Active Substance: PHOSPHOLIPID
     Indication: Myocarditis
     Dosage: 465 MILLIGRAM PER DAY
     Route: 042
  6. PHOSPHOLIPID [Suspect]
     Active Substance: PHOSPHOLIPID
     Indication: Myositis
  7. PHOSPHOLIPID [Suspect]
     Active Substance: PHOSPHOLIPID
     Indication: Hepatitis
  8. GLUTATHIONE [Suspect]
     Active Substance: GLUTATHIONE
     Indication: Myocarditis
     Dosage: 1.8 GRAM PER DAY
     Route: 042
  9. GLUTATHIONE [Suspect]
     Active Substance: GLUTATHIONE
     Indication: Myositis
  10. GLUTATHIONE [Suspect]
     Active Substance: GLUTATHIONE
     Indication: Hepatitis
  11. DEXTROSE [Suspect]
     Active Substance: DEXTROSE
     Indication: Supplementation therapy
     Dosage: UNK (SUPPORTIVE THERAPY)
     Route: 065
  12. MAGNESIUM [Suspect]
     Active Substance: MAGNESIUM
     Indication: Supplementation therapy
     Dosage: UNK (SUPPORTIVE THERAPY)
     Route: 065
  13. AMIODARONE [Suspect]
     Active Substance: AMIODARONE
     Indication: Arrhythmia
     Dosage: UNK
     Route: 042
  14. AMIODARONE [Suspect]
     Active Substance: AMIODARONE
     Indication: Ventricular tachycardia
  15. LIDOCAINE [Suspect]
     Active Substance: LIDOCAINE
     Indication: Arrhythmia
     Dosage: UNK
     Route: 042
  16. LIDOCAINE [Suspect]
     Active Substance: LIDOCAINE
     Indication: Ventricular tachycardia
  17. DIAZEPAM [Suspect]
     Active Substance: DIAZEPAM
     Indication: Arrhythmia
     Dosage: UNK
     Route: 042
  18. DIAZEPAM [Suspect]
     Active Substance: DIAZEPAM
     Indication: Ventricular tachycardia
  19. CAMRELIZUMAB [Concomitant]
     Active Substance: CAMRELIZUMAB
     Indication: Thymoma
     Dosage: 200 MILLIGRAM (EVERY 3 WEEKS)
     Route: 042
  20. PIPERACILLIN SODIUM\TAZOBACTAM SODIUM [Concomitant]
     Active Substance: PIPERACILLIN SODIUM\TAZOBACTAM SODIUM
     Indication: Evidence based treatment
     Dosage: 4.5 GRAM (THREE TIMES A DAY)
     Route: 042

REACTIONS (1)
  - Drug ineffective [Fatal]
